FAERS Safety Report 13973339 (Version 2)
Quarter: 2017Q4

REPORT INFORMATION
  Report Type: Spontaneous
  Country: US (occurrence: US)
  Receive Date: 20170915
  Receipt Date: 20171031
  Transmission Date: 20180321
  Serious: No
  Sender: FDA-Public Use
  Company Number: PHEH2017US029533

PATIENT
  Sex: Female

DRUGS (1)
  1. LOSARTAN POTASSIUM+HYDROCHLOROTHIAZIDE [Suspect]
     Active Substance: HYDROCHLOROTHIAZIDE\LOSARTAN POTASSIUM
     Indication: HYPERTENSION
     Dosage: 1 DF, QD
     Route: 048
     Dates: start: 20170801

REACTIONS (2)
  - Abdominal discomfort [Unknown]
  - Dysgeusia [Unknown]
